FAERS Safety Report 5534892-X (Version None)
Quarter: 2007Q4

REPORT INFORMATION
  Report Type: 
  Country: None (occurrence: None)
  Receive Date: 20071205
  Receipt Date: 20071127
  Transmission Date: 20080405
  Serious: Yes (Death, Hospitalization)
  Sender: FDA-Public Use
  Company Number: GB-BOEHRINGER INGELHEIM PHARMACEUTICALS, INC.-2003-UK-00305UK

PATIENT
  Sex: Male

DRUGS (6)
  1. VIRAMUNE TABLETS (EU/1/97/055/001) [Suspect]
     Indication: HIV TEST POSITIVE
     Dosage: 200MG ONCE DAILY
     Route: 048
     Dates: start: 20030408, end: 20030417
  2. TENOFOVIR DISOPROXIL FUMARATE [Suspect]
     Indication: HIV TEST POSITIVE
     Dates: start: 20030408, end: 20030417
  3. LAMIVUDINE [Suspect]
     Indication: HIV TEST POSITIVE
     Dates: start: 20030408, end: 20030417
  4. IBUPROFEN [Suspect]
  5. SEPTRIN [Concomitant]
     Indication: HIV TEST POSITIVE
     Dosage: 3 TIMES A WEEK
     Route: 048
  6. IBUPROFEN [Concomitant]

REACTIONS (3)
  - HEPATOTOXICITY [None]
  - SEPSIS [None]
  - VANISHING BILE DUCT SYNDROME [None]
